FAERS Safety Report 6667919-2 (Version None)
Quarter: 2010Q2

REPORT INFORMATION
  Report Type: 
  Country: None (occurrence: None)
  Receive Date: 20100401
  Receipt Date: 20100324
  Transmission Date: 20101027
  Serious: Yes (Other)
  Sender: FDA-Public Use
  Company Number: URSO-2010-035

PATIENT
  Age: 42 Year
  Sex: Female

DRUGS (6)
  1. URSODEOXYCHOLIC ACID [Suspect]
     Indication: BILIARY TRACT INFECTION VIRAL
     Dosage: 300 MG ORAL
     Route: 048
     Dates: start: 20100219, end: 20100223
  2. COUMADIN [Suspect]
     Indication: CARDIAC VALVE PROSTHESIS USER
     Dosage: 31.25 MG WEEKLY ORAL
     Route: 048
     Dates: start: 20071126, end: 20100223
  3. CEFIXORAL [Suspect]
     Indication: BILIARY TRACT INFECTION VIRAL
     Dosage: 400 MG ORAL
     Route: 048
     Dates: start: 20100219, end: 20100223
  4. BISOPROLOL FUMARATE [Concomitant]
  5. LASIX [Concomitant]
  6. OMEPRAZEN (OMEPRAZOLE) [Concomitant]

REACTIONS (1)
  - INTERNATIONAL NORMALISED RATIO INCREASED [None]
